FAERS Safety Report 4453233-2 (Version None)
Quarter: 2004Q3

REPORT INFORMATION
  Report Type: 
  Country: None (occurrence: None)
  Receive Date: 20040920
  Receipt Date: 20040912
  Transmission Date: 20050211
  Serious: Yes (Other)
  Sender: FDA-Public Use
  Company Number: US-JNJFOC-20040904238

PATIENT
  Sex: Female

DRUGS (1)
  1. TOPAMAX [Suspect]
     Indication: MIGRAINE
     Route: 049

REACTIONS (6)
  - ANAPHYLACTIC REACTION [None]
  - ASTHMA [None]
  - CONDITION AGGRAVATED [None]
  - KLEBSIELLA INFECTION [None]
  - SINUSITIS BACTERIAL [None]
  - VIRAL INFECTION [None]
